FAERS Safety Report 20688392 (Version 2)
Quarter: 2022Q2

REPORT INFORMATION
  Report Type: Report from Study
  Country: GB (occurrence: GB)
  Receive Date: 20220408
  Receipt Date: 20220617
  Transmission Date: 20220721
  Serious: Yes (Other)
  Sender: FDA-Public Use
  Company Number: GB-NOVARTISPH-NVSC2022GB077797

PATIENT
  Age: 75 Year
  Sex: Male

DRUGS (1)
  1. OMNITROPE [Suspect]
     Active Substance: SOMATROPIN
     Indication: Growth hormone deficiency
     Dosage: 0.3 MG, QD
     Route: 058

REACTIONS (5)
  - Brain neoplasm [Unknown]
  - Blindness [Unknown]
  - Headache [Unknown]
  - Product storage error [Unknown]
  - Product dose omission issue [Unknown]
